FAERS Safety Report 5395539-9 (Version None)
Quarter: 2007Q3

REPORT INFORMATION
  Report Type: 
  Country: None (occurrence: None)
  Receive Date: 20070724
  Receipt Date: 20070719
  Transmission Date: 20080115
  Serious: Yes (Hospitalization)
  Sender: FDA-Public Use
  Company Number: FRWYE068123JUL07

PATIENT
  Sex: Male

DRUGS (1)
  1. ADVIL LIQUI-GELS [Suspect]
     Dosage: 2 TABLETS TOTAL DAILY
     Route: 048
     Dates: start: 20070516, end: 20070518

REACTIONS (3)
  - BLISTER [None]
  - RASH PUSTULAR [None]
  - TOXIC SKIN ERUPTION [None]
